FAERS Safety Report 7732834-X (Version None)
Quarter: 2011Q3

REPORT INFORMATION
  Report Type: 
  Country: None (occurrence: None)
  Receive Date: 20110907
  Receipt Date: 20110830
  Transmission Date: 20111222
  Serious: Yes (Life-Threatening)
  Sender: FDA-Public Use
  Company Number: US-JNJFOC-20110901963

PATIENT
  Sex: Male
  Weight: 108.86 kg

DRUGS (3)
  1. STEROIDS NOS [Suspect]
     Indication: ILL-DEFINED DISORDER
     Route: 061
  2. USTEKINUMAB [Suspect]
     Indication: PSORIASIS
     Route: 058
     Dates: start: 20100623
  3. ACITRETIN [Suspect]
     Indication: ILL-DEFINED DISORDER

REACTIONS (1)
  - MALIGNANT MELANOMA [None]
